FAERS Safety Report 8835093 (Version 1)
Quarter: 2012Q4

REPORT INFORMATION
  Report Type: Report from Study
  Country: RU (occurrence: RU)
  Receive Date: 20121010
  Receipt Date: 20121010
  Transmission Date: 20130627
  Serious: Yes (Other)
  Sender: FDA-Public Use
  Company Number: RU-ROCHE-1143853

PATIENT
  Age: 69 Year
  Sex: Male
  Weight: 70 kg

DRUGS (5)
  1. AVASTIN [Suspect]
     Indication: COLON CANCER METASTATIC
     Route: 042
     Dates: start: 20120307
  2. 5-FLUOROURACIL [Concomitant]
     Indication: COLON CANCER METASTATIC
     Route: 065
     Dates: start: 20120307, end: 20120824
  3. OXALIPLATIN [Concomitant]
     Indication: COLON CANCER METASTATIC
     Route: 065
     Dates: start: 20120307, end: 20120824
  4. LEUCOVORIN [Concomitant]
     Indication: COLON CANCER METASTATIC
     Route: 065
     Dates: start: 20120307, end: 20120824
  5. IRINOTECAN [Concomitant]
     Indication: COLON CANCER METASTATIC
     Route: 065
     Dates: start: 20121005

REACTIONS (1)
  - Disease progression [Not Recovered/Not Resolved]
